FAERS Safety Report 10061419 (Version 2)
Quarter: 2014Q2

REPORT INFORMATION
  Report Type: Spontaneous
  Country: JP (occurrence: JP)
  Receive Date: 20140407
  Receipt Date: 20140422
  Transmission Date: 20141212
  Serious: Yes (Other)
  Sender: FDA-Public Use
  Company Number: JP-CELGENEUS-087-21880-14034857

PATIENT
  Age: 67 Year
  Sex: Female

DRUGS (2)
  1. REVLIMID [Suspect]
     Indication: PLASMA CELL MYELOMA RECURRENT
     Dosage: 15 MILLIGRAM
     Route: 048
     Dates: start: 201311, end: 20140323
  2. REVLIMID [Suspect]
     Dosage: 10 MILLIGRAM
     Route: 048
     Dates: start: 20140324

REACTIONS (1)
  - Extrasystoles [Recovered/Resolved]
